FAERS Safety Report 15036493 (Version 2)
Quarter: 2018Q3

REPORT INFORMATION
  Report Type: Spontaneous
  Country: JP (occurrence: JP)
  Receive Date: 20180620
  Receipt Date: 20180817
  Transmission Date: 20181010
  Serious: Yes (Hospitalization, Other)
  Sender: FDA-Public Use
  Company Number: JP-SA-2018SA150506

PATIENT
  Age: 73 Year
  Sex: Male

DRUGS (13)
  1. STREPTOMYCIN SULFATE. [Suspect]
     Active Substance: STREPTOMYCIN SULFATE
     Indication: TUBERCULOUS PLEURISY
     Dosage: UNK
     Dates: start: 20180516, end: 20180704
  2. LEVOFLOXACIN. [Suspect]
     Active Substance: LEVOFLOXACIN
     Indication: TUBERCULOUS PLEURISY
     Dosage: UNK
     Dates: start: 20170516, end: 20170703
  3. ETHAMBUTOL DIHYDROCHLORIDE [Suspect]
     Active Substance: ETHAMBUTOL HYDROCHLORIDE
     Indication: TUBERCULOUS PLEURISY
     Dosage: 750 MG, QD
     Dates: start: 20170426, end: 20170503
  4. RIFADIN [Suspect]
     Active Substance: RIFAMPIN
     Dosage: 50 MG, QD
     Route: 048
     Dates: start: 20170622, end: 20170722
  5. PYRAZINAMIDE. [Suspect]
     Active Substance: PYRAZINAMIDE
     Indication: TUBERCULOUS PLEURISY
     Dosage: 1.5 MG, QD
     Route: 048
     Dates: start: 20180426, end: 20180503
  6. STREPTOMYCIN SULFATE. [Suspect]
     Active Substance: STREPTOMYCIN SULFATE
     Dosage: UNK
     Dates: start: 20170705, end: 20180307
  7. ISONIAZID. [Suspect]
     Active Substance: ISONIAZID
     Dosage: 300 UNK
     Dates: start: 20170529, end: 20170703
  8. RIFADIN [Suspect]
     Active Substance: RIFAMPIN
     Indication: TUBERCULOUS PLEURISY
     Dosage: 450 MG, QD
     Dates: start: 20170426, end: 20170503
  9. RIFADIN [Suspect]
     Active Substance: RIFAMPIN
     Dosage: 25 MG, QD
     Dates: start: 20170619, end: 20170621
  10. ISONIAZID. [Suspect]
     Active Substance: ISONIAZID
     Dosage: 300 MG, QD
     Route: 048
     Dates: start: 20170426, end: 20170503
  11. ISONIAZID. [Suspect]
     Active Substance: ISONIAZID
     Dosage: 25 UNK
     Dates: start: 20170517, end: 20170528
  12. ETHAMBUTOL DIHYDROCHLORIDE [Suspect]
     Active Substance: ETHAMBUTOL HYDROCHLORIDE
     Dosage: 750 MG, QD
     Route: 048
     Dates: start: 20170630, end: 20170703
  13. PYDOXAL [Concomitant]
     Active Substance: PYRIDOXAL
     Dosage: UNK
     Dates: start: 20180426, end: 20180503

REACTIONS (3)
  - Malaise [Unknown]
  - Drug-induced liver injury [Recovered/Resolved]
  - Peritoneal tuberculosis [Unknown]

NARRATIVE: CASE EVENT DATE: 2017
